FAERS Safety Report 6196261-1 (Version None)
Quarter: 2009Q2

REPORT INFORMATION
  Report Type: 
  Country: None (occurrence: None)
  Receive Date: 20090518
  Receipt Date: 20090505
  Transmission Date: 20091009
  Serious: Yes (Other)
  Sender: FDA-Public Use
  Company Number: 2009-00605

PATIENT
  Age: 58 Year
  Sex: Female
  Weight: 91 kg

DRUGS (5)
  1. VELCADE [Suspect]
     Indication: MULTIPLE MYELOMA
     Dosage: 2.5 MG, INTRAVENOUS
     Route: 042
     Dates: start: 20070405, end: 20081110
  2. LEVOTHYROXINE SODIUM [Concomitant]
  3. COTRIM [Concomitant]
  4. PANTOPRAZOLE SODIUM [Concomitant]
  5. ACYCLOVIR [Concomitant]

REACTIONS (1)
  - ANAL ABSCESS [None]
